FAERS Safety Report 8609321-X (Version None)
Quarter: 2012Q3

REPORT INFORMATION
  Report Type: 
  Country: None (occurrence: None)
  Receive Date: 20120821
  Receipt Date: 20120813
  Transmission Date: 20120928
  Serious: Yes (Other)
  Sender: FDA-Public Use
  Company Number: CZ-TEVA-353757ISR

PATIENT
  Age: 47 Year
  Sex: Male

DRUGS (1)
  1. SERTRALINE HYDROCHLORIDE [Suspect]
     Indication: DEPRESSION
     Dosage: 50 MILLIGRAM DAILY; 50MG DAILY
     Route: 065

REACTIONS (4)
  - RESTLESS LEGS SYNDROME [None]
  - PERIODIC LIMB MOVEMENT DISORDER [None]
  - MOVEMENT DISORDER [None]
  - DYSKINESIA [None]
